FAERS Safety Report 5419446-8 (Version None)
Quarter: 2007Q3

REPORT INFORMATION
  Report Type: 
  Country: None (occurrence: None)
  Receive Date: 20070820
  Receipt Date: 20070816
  Transmission Date: 20080115
  Serious: Yes (Death, Hospitalization)
  Sender: FDA-Public Use
  Company Number: B0482760A

PATIENT
  Age: 80 Year
  Sex: Female
  Weight: 55 kg

DRUGS (10)
  1. ARIXTRA [Suspect]
     Dosage: 2.5MG PER DAY
     Route: 058
     Dates: start: 20070108, end: 20070226
  2. DAFALGAN [Concomitant]
     Indication: PAIN
     Dosage: 500MG SIX TIMES PER DAY
     Route: 048
  3. ACTONEL [Concomitant]
     Indication: OSTEOPOROSIS
  4. KARDEGIC [Concomitant]
     Indication: ATRIAL FIBRILLATION
     Dosage: 75MG PER DAY
     Route: 048
  5. LEVOTHYROXINE SODIUM [Concomitant]
     Indication: HYPOTHYROIDISM
     Dosage: 75MCG PER DAY
  6. PHYSIOTENS [Concomitant]
     Dosage: .4MG PER DAY
  7. SERC [Concomitant]
     Indication: DIZZINESS
     Dosage: 8MG THREE TIMES PER DAY
  8. CORDARONE [Concomitant]
     Dosage: 1TAB PER DAY
     Route: 048
  9. LOXEN [Concomitant]
  10. DEPAKENE [Concomitant]
     Dosage: 500MG THREE TIMES PER DAY

REACTIONS (7)
  - CEREBROVASCULAR ACCIDENT [None]
  - COMA [None]
  - ESCHERICHIA URINARY TRACT INFECTION [None]
  - HEMIPLEGIA [None]
  - INTRAVENTRICULAR HAEMORRHAGE [None]
  - OBSTRUCTIVE AIRWAYS DISORDER [None]
  - SUBCLAVIAN VEIN THROMBOSIS [None]
